FAERS Safety Report 15745361 (Version 1)
Quarter: 2018Q4

REPORT INFORMATION
  Report Type: Report from Study
  Country: JP (occurrence: JP)
  Receive Date: 20181220
  Receipt Date: 20181220
  Transmission Date: 20190205
  Serious: Yes (Death)
  Sender: FDA-Public Use
  Company Number: JP-TEVA-2018-JP-988473

PATIENT
  Age: 68 Year
  Sex: Male

DRUGS (6)
  1. METHYLPREDNISOLONE. [Suspect]
     Active Substance: METHYLPREDNISOLONE
     Dosage: FOR POSTOPERATIVE DAYS 4-6
     Route: 042
  2. TACROLIMUS. [Suspect]
     Active Substance: TACROLIMUS
     Indication: IMMUNOSUPPRESSANT DRUG THERAPY
     Dosage: THE TARGET TROUGH LEVEL WAS 10 TO 15 NG/ML DURING THE FIRST AND SECOND WEEKS
     Route: 065
  3. PREDNISOLONE. [Suspect]
     Active Substance: PREDNISOLONE
     Route: 048
  4. METHYLPREDNISOLONE. [Suspect]
     Active Substance: METHYLPREDNISOLONE
     Indication: IMMUNOSUPPRESSANT DRUG THERAPY
     Dosage: ADMINISTERED IMMEDIATELY BEFORE PERFUSION OF THE GRAFT PORTAL VEIN
     Route: 042
  5. METHYLPREDNISOLONE. [Suspect]
     Active Substance: METHYLPREDNISOLONE
     Dosage: FOR POSTOPERATIVE DAYS 1-3
     Route: 042
  6. PREDNISOLONE. [Suspect]
     Active Substance: PREDNISOLONE
     Indication: IMMUNOSUPPRESSANT DRUG THERAPY
     Dosage: FROM POST OPERATIVE DAY 7, LATER CONTINUED AT 0.1MG/KG
     Route: 048

REACTIONS (1)
  - Lung neoplasm malignant [Fatal]
